FAERS Safety Report 5273557-9 (Version None)
Quarter: 2007Q1

REPORT INFORMATION
  Report Type: 
  Country: None (occurrence: None)
  Receive Date: 20070321
  Receipt Date: 20070321
  Transmission Date: 20070707
  Serious: Yes (Hospitalization)
  Sender: FDA-Public Use
  Company Number: None

PATIENT
  Age: 43 Year
  Sex: Female
  Weight: 88.5 kg

DRUGS (2)
  1. ZOSYN [Suspect]
     Indication: PNEUMONIA
     Dosage: 3.375GM IV
     Route: 042
     Dates: start: 20070126, end: 20070217
  2. ZOSYN [Suspect]
     Indication: PULMONARY CAVITATION
     Dosage: 3.375GM IV
     Route: 042
     Dates: start: 20070126, end: 20070217

REACTIONS (2)
  - GRANULOCYTOSIS [None]
  - LEUKOPENIA [None]
